FAERS Safety Report 5921058-4 (Version None)
Quarter: 2008Q4

REPORT INFORMATION
  Report Type: 
  Country: None (occurrence: None)
  Receive Date: 20081016
  Receipt Date: 20081007
  Transmission Date: 20090506
  Serious: Yes (Hospitalization)
  Sender: FDA-Public Use
  Company Number: SE-PFIZER INC-2008084318

PATIENT
  Sex: Female
  Weight: 83 kg

DRUGS (12)
  1. GENOTROPIN [Suspect]
     Indication: HYPOPITUITARISM
     Route: 058
     Dates: start: 19960611, end: 20080929
  2. HYDROCORTISONE 10MG TAB [Concomitant]
     Indication: BLOOD CORTICOTROPHIN DECREASED
     Dosage: DAILY DOSE:20MG
     Dates: start: 20070301
  3. LEVOTHYROXINE SODIUM [Concomitant]
     Indication: HYPOTHYROIDISM
     Dosage: DAILY DOSE:100MCG
     Dates: start: 20020219
  4. LIPITOR [Concomitant]
     Indication: HYPERCHOLESTEROLAEMIA
     Dosage: DAILY DOSE:10MG
     Dates: start: 20001110
  5. LIVIAL [Concomitant]
     Dosage: DAILY DOSE:2.5MG
     Dates: start: 20011001
  6. DESMOPRESSIN ACETATE [Concomitant]
     Indication: DIABETES INSIPIDUS
     Dosage: DAILY DOSE:120MCG
     Dates: start: 20070118
  7. DHEA [Concomitant]
     Indication: HYPOGONADISM
     Dosage: DAILY DOSE:25MG
     Dates: start: 20021015
  8. RENITEC [Concomitant]
     Indication: HYPERTENSION
     Dosage: DAILY DOSE:5MG
     Dates: start: 20020315
  9. SOTALOL HCL [Concomitant]
     Indication: TACHYCARDIA
     Dosage: DAILY DOSE:80MG
     Dates: start: 19960401
  10. SOTALOL HCL [Concomitant]
     Indication: HYPERTENSION
  11. TRIOBE [Concomitant]
     Indication: VITAMIN B12 DEFICIENCY
     Dates: start: 20031205
  12. ASPIRIN [Concomitant]
     Indication: ARTERIOSCLEROSIS
     Dosage: DAILY DOSE:75MG
     Dates: start: 20030601

REACTIONS (1)
  - UTERINE CANCER [None]
